FAERS Safety Report 6288803-2 (Version None)
Quarter: 2009Q3

REPORT INFORMATION
  Report Type: 
  Country: None (occurrence: None)
  Receive Date: 20090729
  Receipt Date: 20090717
  Transmission Date: 20100115
  Serious: Yes (Other)
  Sender: FDA-Public Use
  Company Number: JP-PFIZER INC-2009212856

PATIENT
  Age: 72 Year

DRUGS (22)
  1. SELARA [Suspect]
     Indication: HYPERTENSION
     Dosage: 25 MG, 1X/DAY
     Dates: start: 20081007, end: 20090511
  2. SELARA [Suspect]
     Indication: ANGINA PECTORIS
  3. MAG-LAX [Suspect]
     Indication: CONSTIPATION
     Dosage: 330 MG, 3X/DAY
     Dates: start: 20090427, end: 20090511
  4. BLOPRESS [Concomitant]
     Indication: HYPERTENSION
     Dosage: 2 MG, 1X/DAY
     Route: 048
     Dates: start: 20051028
  5. BLOPRESS [Concomitant]
     Indication: ANGINA PECTORIS
  6. TENORMIN [Concomitant]
     Indication: HYPERTENSION
     Dosage: 25 MG, 1X/DAY
     Route: 048
     Dates: start: 20030520
  7. TENORMIN [Concomitant]
     Indication: ANGINA PECTORIS
  8. BUFFERIN [Concomitant]
     Indication: HYPERTENSION
     Dosage: UNK
     Route: 048
     Dates: start: 20030520
  9. BUFFERIN [Concomitant]
     Indication: ANGINA PECTORIS
  10. FUROSEMIDE [Concomitant]
     Indication: HYPERTENSION
     Dosage: 20 MG, 1X/DAY
     Route: 048
     Dates: start: 20030524
  11. FUROSEMIDE [Concomitant]
     Indication: ANGINA PECTORIS
  12. NIFELAT L [Concomitant]
     Indication: HYPERTENSION
     Dosage: 80 MG, 2X/DAY
     Route: 048
     Dates: start: 20060414
  13. NIFELAT L [Concomitant]
     Indication: ANGINA PECTORIS
  14. ITOROL [Concomitant]
     Dosage: UNK
  15. TAKEPRON [Concomitant]
     Indication: GASTRIC ULCER
     Dosage: UNK
     Route: 048
     Dates: start: 20060620
  16. ALOSENN [Concomitant]
     Indication: CONSTIPATION
     Dosage: 0.5 G, 1X/DAY
     Route: 048
     Dates: start: 20030501
  17. SIMVASTATIN [Concomitant]
     Indication: HYPERLIPIDAEMIA
     Dosage: UNK
     Route: 048
     Dates: start: 20060623
  18. INSULIN [Concomitant]
     Indication: DIABETES MELLITUS
     Route: 058
  19. NOVORAPID [Concomitant]
     Indication: DIABETES MELLITUS
     Route: 058
  20. OPALMON [Concomitant]
     Indication: LUMBAR SPINAL STENOSIS
     Dosage: UNK
     Route: 048
     Dates: start: 20060525, end: 20090511
  21. MECOBALAMIN [Concomitant]
     Indication: LUMBAR SPINAL STENOSIS
     Dosage: UNK
     Route: 048
     Dates: start: 20070611, end: 20090511
  22. MOHRUS [Concomitant]
     Indication: LUMBAR SPINAL STENOSIS
     Dosage: UNK
     Dates: start: 20070301

REACTIONS (1)
  - INTERSTITIAL LUNG DISEASE [None]
